FAERS Safety Report 13533859 (Version 1)
Quarter: 2017Q2

REPORT INFORMATION
  Report Type: Spontaneous
  Country: US (occurrence: US)
  Receive Date: 20170510
  Receipt Date: 20170510
  Transmission Date: 20170830
  Serious: No
  Sender: FDA-Public Use
  Company Number: US-SA-2017SA065725

PATIENT
  Age: 65 Year
  Sex: Female

DRUGS (2)
  1. XYZAL ALLERGY 24HR [Suspect]
     Active Substance: LEVOCETIRIZINE DIHYDROCHLORIDE
     Indication: SEASONAL ALLERGY
     Dosage: DOSE AND FREQUENCY: 5 PILLS BUT NOT DAILY JUST RANDOMLY OVER THE LAST SEVERAL WEEKS
     Route: 065
  2. NEXIUM [Concomitant]
     Active Substance: ESOMEPRAZOLE MAGNESIUM
     Route: 065

REACTIONS (5)
  - Coordination abnormal [Unknown]
  - Feeling abnormal [Unknown]
  - Lethargy [Unknown]
  - Fatigue [Unknown]
  - Intentional product use issue [Unknown]
